FAERS Safety Report 6170489-9 (Version None)
Quarter: 2009Q2

REPORT INFORMATION
  Report Type: 
  Country: None (occurrence: None)
  Receive Date: 20090428
  Receipt Date: 20090423
  Transmission Date: 20091009
  Serious: No
  Sender: FDA-Public Use
  Company Number: US-B.I. PHARMACEUTICALS,INC./RIDGEFIELD-2009-BP-05237BP

PATIENT
  Age: 59 Year
  Sex: Female

DRUGS (6)
  1. AGGRENOX [Suspect]
     Indication: CEREBROVASCULAR ACCIDENT PROPHYLAXIS
     Route: 048
     Dates: start: 20090404, end: 20090420
  2. ALDACTONE [Concomitant]
  3. K-DUR [Concomitant]
  4. LANTUS [Concomitant]
  5. IMODIUM [Concomitant]
  6. MEPHYTON [Concomitant]

REACTIONS (1)
  - HEADACHE [None]
